FAERS Safety Report 8970940 (Version 3)
Quarter: 2014Q1

REPORT INFORMATION
  Report Type: Report from Study
  Country: US (occurrence: US)
  Receive Date: 20121218
  Receipt Date: 20140116
  Transmission Date: 20141002
  Serious: Yes (Other)
  Sender: FDA-Public Use
  Company Number: US-PFIZER INC-2011072500

PATIENT
  Age: 51 Year
  Sex: Female
  Weight: 48.98 kg

DRUGS (5)
  1. REVATIO [Suspect]
     Indication: PULMONARY HYPERTENSION
     Dosage: 20 MG, 3X/DAY
     Route: 048
     Dates: start: 201011
  2. REVATIO [Suspect]
     Indication: CARDIAC DISORDER
  3. PRO-AIR [Concomitant]
     Dosage: UNK
  4. ADVAIR [Concomitant]
     Dosage: UNK
  5. LASIX [Concomitant]
     Dosage: UNK

REACTIONS (11)
  - Dizziness [Not Recovered/Not Resolved]
  - Syncope [Not Recovered/Not Resolved]
  - Depression [Not Recovered/Not Resolved]
  - Disturbance in attention [Not Recovered/Not Resolved]
  - Appetite disorder [Not Recovered/Not Resolved]
  - Dysgeusia [Not Recovered/Not Resolved]
  - Agitation [Not Recovered/Not Resolved]
  - Irritability [Not Recovered/Not Resolved]
  - Aggression [Not Recovered/Not Resolved]
  - Asthenia [Not Recovered/Not Resolved]
  - Feeling abnormal [Not Recovered/Not Resolved]
